FAERS Safety Report 6297253-4 (Version None)
Quarter: 2009Q3

REPORT INFORMATION
  Report Type: 
  Country: None (occurrence: None)
  Receive Date: 20090804
  Receipt Date: 20090804
  Transmission Date: 20100115
  Serious: Yes (Other)
  Sender: FDA-Public Use
  Company Number: None

PATIENT
  Sex: Male
  Weight: 68.0396 kg

DRUGS (1)
  1. DEPAKOTE [Suspect]
     Indication: CONVULSION
     Dosage: 500MG X2 A DAY
     Dates: start: 20090709

REACTIONS (3)
  - FEAR [None]
  - HALLUCINATION, AUDITORY [None]
  - PALPITATIONS [None]
